FAERS Safety Report 14474693 (Version 1)
Quarter: 2018Q1

REPORT INFORMATION
  Report Type: Spontaneous
  Country: GB (occurrence: GB)
  Receive Date: 20180201
  Receipt Date: 20180201
  Transmission Date: 20180509
  Serious: Yes (Other)
  Sender: FDA-Public Use
  Company Number: US-BRAINTREE LABORATORIES-180031-1

PATIENT
  Age: 43 Year
  Sex: Male

DRUGS (1)
  1. EZICLEN [Suspect]
     Active Substance: MAGNESIUM SULFATE\POTASSIUM SULFATE\SODIUM SULFATE
     Dosage: *1 X 6 OZ. BOTTLE
     Route: 048

REACTIONS (6)
  - Respiratory distress [None]
  - Hypersensitivity [None]
  - Dyspnoea [None]
  - Throat irritation [None]
  - Oropharyngeal pain [None]
  - Pharyngeal oedema [None]

NARRATIVE: CASE EVENT DATE: 20171113
